FAERS Safety Report 14214511 (Version 3)
Quarter: 2018Q1

REPORT INFORMATION
  Report Type: Report from Study
  Country: None (occurrence: FI)
  Receive Date: 20171122
  Receipt Date: 20180116
  Transmission Date: 20180508
  Serious: Yes (Hospitalization)
  Sender: FDA-Public Use
  Company Number: FI-ABBVIE-17P-055-2166411-00

PATIENT
  Age: 75 Year
  Sex: Female
  Weight: 81.2 kg

DRUGS (24)
  1. ABT-199 [Suspect]
     Active Substance: VENETOCLAX
     Route: 048
     Dates: start: 20171211
  2. ORAL FLUIDS [Concomitant]
     Route: 048
     Dates: start: 20171105, end: 20171105
  3. FEMIGLANDIN GLA+E (EVENING PRIMROSE OIL) [Concomitant]
     Indication: ERYTHEMA
     Route: 061
     Dates: start: 20171101
  4. ORAL FLUIDS [Concomitant]
     Indication: PROPHYLAXIS
     Route: 048
     Dates: start: 20171029, end: 20171029
  5. ORAL FLUIDS [Concomitant]
     Route: 048
     Dates: start: 20171031, end: 20171031
  6. ORAL FLUIDS [Concomitant]
     Route: 048
     Dates: start: 20171104, end: 20171104
  7. ZOPINOX [Concomitant]
     Active Substance: ZOPICLONE
     Indication: PROPHYLAXIS
     Route: 048
     Dates: start: 20171019
  8. ABT-199 [Suspect]
     Active Substance: VENETOCLAX
     Route: 048
     Dates: start: 20171031, end: 20171031
  9. AZACITIDINE. [Suspect]
     Active Substance: AZACITIDINE
     Route: 058
     Dates: start: 20171211
  10. ORAL FLUIDS [Concomitant]
     Route: 048
     Dates: start: 20171102, end: 20171102
  11. ORAL FLUIDS [Concomitant]
     Route: 048
     Dates: start: 20171106, end: 20171106
  12. NORMAL SALINE SOLUTION (0.9% SODIUM CHLORIDE) [Concomitant]
     Route: 042
     Dates: start: 20171031, end: 20171031
  13. PANADOL FORTE [Concomitant]
     Active Substance: ACETAMINOPHEN\CAFFEINE
     Indication: FEBRILE NEUTROPENIA
     Route: 048
     Dates: start: 20171031
  14. ABT-199 [Suspect]
     Active Substance: VENETOCLAX
     Indication: ACUTE MYELOID LEUKAEMIA
     Route: 048
     Dates: start: 20171030, end: 20171030
  15. ABT-199 [Suspect]
     Active Substance: VENETOCLAX
     Route: 048
     Dates: start: 20171101, end: 20171126
  16. ORAL FLUIDS [Concomitant]
     Route: 048
     Dates: start: 20171030, end: 20171030
  17. ORAL FLUIDS [Concomitant]
     Route: 048
     Dates: start: 20171103, end: 20171103
  18. NORMAL SALINE SOLUTION (0.9% SODIUM CHLORIDE) [Concomitant]
     Indication: PROPHYLAXIS
     Route: 042
     Dates: start: 20171029, end: 20171029
  19. ALLOPURINOL. [Concomitant]
     Active Substance: ALLOPURINOL
     Route: 048
     Dates: start: 20171211
  20. ORAL FLUIDS [Concomitant]
     Route: 048
     Dates: start: 20171101, end: 20171101
  21. LEVOLAC [Concomitant]
     Active Substance: LACTULOSE
     Indication: CONSTIPATION
     Route: 048
     Dates: start: 20171105
  22. AZACITIDINE. [Suspect]
     Active Substance: AZACITIDINE
     Indication: ACUTE MYELOID LEUKAEMIA
     Route: 058
     Dates: start: 20171030, end: 20171105
  23. ALLOPURINOL. [Concomitant]
     Active Substance: ALLOPURINOL
     Indication: PROPHYLAXIS
     Route: 048
     Dates: start: 20171026, end: 20171106
  24. NORMAL SALINE SOLUTION (0.9% SODIUM CHLORIDE) [Concomitant]
     Route: 042
     Dates: start: 20171030, end: 20171030

REACTIONS (1)
  - Diverticulitis [Recovered/Resolved]

NARRATIVE: CASE EVENT DATE: 20171115
